FAERS Safety Report 5400338-5 (Version None)
Quarter: 2007Q3

REPORT INFORMATION
  Report Type: 
  Country: None (occurrence: None)
  Receive Date: 20070730
  Receipt Date: 20070727
  Transmission Date: 20080115
  Serious: Yes (Life-Threatening, Hospitalization, Disabling, Other)
  Sender: FDA-Public Use
  Company Number: A0664381A

PATIENT
  Sex: Male
  Weight: 59.1 kg

DRUGS (3)
  1. FLOLAN [Suspect]
     Route: 042
  2. ANTIBIOTIC [Concomitant]
  3. HEPARIN [Concomitant]
     Dates: end: 20040101

REACTIONS (7)
  - ASTHENIA [None]
  - CATHETER RELATED COMPLICATION [None]
  - CATHETER SITE INFECTION [None]
  - CONDITION AGGRAVATED [None]
  - DEVICE FAILURE [None]
  - PHARMACEUTICAL PRODUCT COMPLAINT [None]
  - PROCEDURAL COMPLICATION [None]
